FAERS Safety Report 15984806 (Version 2)
Quarter: 2020Q2

REPORT INFORMATION
  Report Type: Spontaneous
  Country: KR (occurrence: KR)
  Receive Date: 20190220
  Receipt Date: 20200604
  Transmission Date: 20200713
  Serious: Yes (Hospitalization)
  Sender: FDA-Public Use
  Company Number: KR-TAKEDA-2017TEU004801

PATIENT
  Age: 41 Year
  Sex: Male
  Weight: 97 kg

DRUGS (23)
  1. LEGALON [Concomitant]
     Active Substance: DIETARY SUPPLEMENT\HERBALS\MILK THISTLE
     Indication: HEPATITIS ACUTE
     Dosage: UNK UNK, TID
     Route: 048
     Dates: start: 20160317, end: 20160319
  2. URSA [Concomitant]
     Active Substance: URSODIOL
     Indication: HEPATITIS ACUTE
     Dosage: UNK UNK, TID
     Route: 048
     Dates: start: 20160317, end: 20160319
  3. PETHIDINE [Concomitant]
     Active Substance: MEPERIDINE
     Indication: HEPATITIS ACUTE
     Dosage: UNK UNK, QD
     Route: 042
     Dates: start: 20160312, end: 20160315
  4. TRIDOL [Concomitant]
     Active Substance: TRAMADOL HYDROCHLORIDE
     Indication: HEPATITIS ACUTE
     Dosage: UNK UNK, QD
     Route: 030
     Dates: start: 20160312, end: 20160312
  5. NESINA [Suspect]
     Active Substance: ALOGLIPTIN BENZOATE
     Indication: TYPE 2 DIABETES MELLITUS
     Dosage: 12.5 MILLIGRAM, QD
     Route: 048
     Dates: start: 20151007
  6. HEPA-MERZ INFUSION [Concomitant]
     Indication: HEPATITIS ACUTE
     Dosage: UNK UNK, QD
     Route: 042
     Dates: start: 20160312, end: 20160313
  7. BEECOM HEXA [Concomitant]
     Indication: HEPATITIS ACUTE
     Dosage: UNK UNK, QD
     Route: 042
     Dates: start: 20160312, end: 20160313
  8. BEECOM HEXA [Concomitant]
     Indication: HYPOVITAMINOSIS
  9. MECKOOL [Concomitant]
     Indication: PROPHYLAXIS AGAINST GASTROINTESTINAL ULCER
     Dosage: UNK UNK, QD
     Route: 042
     Dates: start: 20160312, end: 20160315
  10. MEIACT [Concomitant]
     Active Substance: CEFDITOREN PIVOXIL
     Indication: HEPATITIS ACUTE
     Dosage: UNK UNK, TID
     Route: 048
     Dates: start: 20160317, end: 20160319
  11. PRAVASTATIN. [Concomitant]
     Active Substance: PRAVASTATIN
     Indication: PROPHYLAXIS
     Dosage: UNK UNK, QD
     Route: 048
     Dates: start: 20151007
  12. COMBIFLEX PERI [Concomitant]
     Indication: HEPATITIS ACUTE
     Dosage: UNK UNK, QD
     Route: 042
     Dates: start: 20160312, end: 20160313
  13. COMBIFLEX PERI [Concomitant]
     Indication: NUTRITIONAL SUPPLEMENTATION
  14. HUMULIN R [Concomitant]
     Active Substance: INSULIN HUMAN
     Indication: TYPE 2 DIABETES MELLITUS
     Dosage: UNK UNK, QD
     Route: 058
     Dates: start: 20160312, end: 20160314
  15. CEFOBACTAM [Concomitant]
     Active Substance: CEFOPERAZONE SODIUM\SULBACTAM SODIUM
     Indication: HEPATITIS ACUTE
     Dosage: UNK UNK, BID
     Route: 042
     Dates: start: 20160312, end: 20160314
  16. CEFOBACTAM [Concomitant]
     Active Substance: CEFOPERAZONE SODIUM\SULBACTAM SODIUM
     Indication: INFECTION
  17. ISOTONIC SODIUM CHLORIDE SOLUTION [Concomitant]
     Active Substance: SODIUM CHLORIDE
     Indication: HEPATITIS ACUTE
     Dosage: UNK UNK, QD
     Route: 042
     Dates: start: 20160312, end: 20160312
  18. ASCORBIC ACID. [Concomitant]
     Active Substance: ASCORBIC ACID
     Indication: HEPATITIS ACUTE
     Dosage: UNK UNK, QD
     Route: 042
     Dates: start: 20160312, end: 20160313
  19. DEXTROSE. [Concomitant]
     Active Substance: DEXTROSE
     Indication: HEPATITIS ACUTE
     Dosage: UNK UNK, QD
     Route: 042
     Dates: start: 20160312, end: 20160313
  20. TRIDOL [Concomitant]
     Active Substance: TRAMADOL HYDROCHLORIDE
     Indication: PAIN
  21. METFORMIN [Concomitant]
     Active Substance: METFORMIN HYDROCHLORIDE
     Indication: TYPE 2 DIABETES MELLITUS
     Dosage: UNK UNK, QD
     Route: 048
     Dates: start: 20151007
  22. FENOFIBRATE. [Concomitant]
     Active Substance: FENOFIBRATE
     Indication: PROPHYLAXIS
     Dosage: UNK UNK, QD
     Route: 048
     Dates: start: 20151007, end: 20160311
  23. ASCORBIC ACID. [Concomitant]
     Active Substance: ASCORBIC ACID
     Indication: HYPOVITAMINOSIS

REACTIONS (1)
  - Hepatitis acute [Recovered/Resolved]

NARRATIVE: CASE EVENT DATE: 20160312
